FAERS Safety Report 8232185-3 (Version None)
Quarter: 2012Q1

REPORT INFORMATION
  Report Type: 
  Country: None (occurrence: None)
  Receive Date: 20120320
  Receipt Date: 20120306
  Transmission Date: 20120608
  Serious: Yes (Other)
  Sender: FDA-Public Use
  Company Number: 2012S1000294

PATIENT
  Age: 56 Year
  Sex: Male

DRUGS (1)
  1. LIVALO [Suspect]
     Dosage: ;PO
     Route: 048
     Dates: start: 20111104, end: 20111206

REACTIONS (1)
  - RHABDOMYOLYSIS [None]
